FAERS Safety Report 6361726-6 (Version None)
Quarter: 2009Q3

REPORT INFORMATION
  Report Type: 
  Country: None (occurrence: None)
  Receive Date: 20090918
  Receipt Date: 20090908
  Transmission Date: 20100115
  Serious: Yes (Other)
  Sender: FDA-Public Use
  Company Number: JP-PFIZER INC-2009269943

PATIENT
  Age: 24 Year

DRUGS (2)
  1. ZOLOFT [Suspect]
     Dosage: UNK
     Route: 048
  2. DEPAKENE [Concomitant]
     Dosage: UNK
     Route: 048

REACTIONS (2)
  - CONVULSION [None]
  - LOSS OF CONSCIOUSNESS [None]
